FAERS Safety Report 6371297-6 (Version None)
Quarter: 2009Q3

REPORT INFORMATION
  Report Type: 
  Country: None (occurrence: None)
  Receive Date: 20090923
  Receipt Date: 20090920
  Transmission Date: 20100115
  Serious: Yes (Other)
  Sender: FDA-Public Use
  Company Number: US-TEVA-209770USA

PATIENT
  Sex: Female

DRUGS (1)
  1. AMPHETAMINES [Suspect]
     Route: 048

REACTIONS (7)
  - ABNORMAL BEHAVIOUR [None]
  - CONSTIPATION [None]
  - DIZZINESS [None]
  - FEELING ABNORMAL [None]
  - HEADACHE [None]
  - IRRITABILITY [None]
  - SUICIDAL IDEATION [None]
